FAERS Safety Report 18946658 (Version 1)
Quarter: 2021Q1

REPORT INFORMATION
  Report Type: Spontaneous
  Country: BR (occurrence: BR)
  Receive Date: 20210226
  Receipt Date: 20210226
  Transmission Date: 20210420
  Serious: Yes (Death, Other)
  Sender: FDA-Public Use
  Company Number: BR-ELI_LILLY_AND_COMPANY-BR202102010645

PATIENT
  Sex: Female

DRUGS (2)
  1. VERZENIOS [Suspect]
     Active Substance: ABEMACICLIB
     Indication: PRODUCT USED FOR UNKNOWN INDICATION
     Dosage: 150 MG, BID
     Route: 065
  2. FULVESTRANTO [Concomitant]
     Active Substance: FULVESTRANT
     Dosage: UNK, UNKNOWN
     Route: 065

REACTIONS (3)
  - Hepatic failure [Unknown]
  - Death [Fatal]
  - Hypercalcaemia of malignancy [Unknown]

NARRATIVE: CASE EVENT DATE: 202102
